FAERS Safety Report 5091962-0 (Version None)
Quarter: 2006Q3

REPORT INFORMATION
  Report Type: 
  Country: None (occurrence: None)
  Receive Date: 20060825
  Receipt Date: 20060816
  Transmission Date: 20061208
  Serious: Yes (Other)
  Sender: FDA-Public Use
  Company Number: GXKR2006GB05019

PATIENT
  Age: 36 Year
  Sex: Male
  Weight: 85 kg

DRUGS (5)
  1. DOXYCYCLINE [Suspect]
     Indication: MALARIA PROPHYLAXIS
     Dosage: 100 MG, ORAL
     Route: 048
     Dates: start: 20060603, end: 20060628
  2. TYPHOID VACCINE [Concomitant]
  3. DIPHTHERIA VACCINE [Concomitant]
  4. HEPATITIS A VACCINE [Concomitant]
  5. TETANUS TOXOID [Concomitant]

REACTIONS (3)
  - DERMATITIS EXFOLIATIVE [None]
  - PSORIASIS [None]
  - RASH MACULO-PAPULAR [None]
